FAERS Safety Report 4543378-0 (Version None)
Quarter: 2005Q1

REPORT INFORMATION
  Report Type: 
  Country: None (occurrence: None)
  Receive Date: 20050103
  Receipt Date: 20041224
  Transmission Date: 20050727
  Serious: Yes (Death)
  Sender: FDA-Public Use
  Company Number: 200413992JP

PATIENT
  Age: 97 Year
  Sex: Female

DRUGS (4)
  1. KETEK [Suspect]
     Indication: BRONCHOPNEUMONIA
     Route: 048
     Dates: start: 20041220, end: 20041220
  2. MAGNESIUM OXIDE [Concomitant]
     Route: 048
     Dates: start: 20041220, end: 20041220
  3. PANTOSIN [Concomitant]
     Route: 048
     Dates: start: 20041220, end: 20041220
  4. MEBRON [Concomitant]
     Route: 048
     Dates: start: 20041220, end: 20041220

REACTIONS (3)
  - INJURY ASPHYXIATION [None]
  - LOSS OF CONSCIOUSNESS [None]
  - SUDDEN DEATH [None]
